FAERS Safety Report 18282822 (Version 1)
Quarter: 2020Q3

REPORT INFORMATION
  Report Type: Spontaneous
  Country: DE (occurrence: DE)
  Receive Date: 20200918
  Receipt Date: 20200918
  Transmission Date: 20201103
  Serious: Yes (Other)
  Sender: FDA-Public Use
  Company Number: DE-UCBSA-2020035872

PATIENT
  Sex: Female
  Weight: 90 kg

DRUGS (2)
  1. MTX [METHOTREXATE] [Concomitant]
     Active Substance: METHOTREXATE SODIUM
     Indication: PRODUCT USED FOR UNKNOWN INDICATION
     Dosage: 7.5 MILLIGRAM, WEEKLY (QW)
     Dates: start: 2016
  2. CERTOLIZUMAB PEGOL [Suspect]
     Active Substance: CERTOLIZUMAB PEGOL
     Indication: SPONDYLITIS
     Dosage: 400 MILLIGRAM, UNK
     Route: 058
     Dates: start: 2016

REACTIONS (1)
  - Transitional cell carcinoma [Unknown]

NARRATIVE: CASE EVENT DATE: 201708
